FAERS Safety Report 12487262 (Version 3)
Quarter: 2016Q3

REPORT INFORMATION
  Report Type: Spontaneous
  Country: JP (occurrence: JP)
  Receive Date: 20160622
  Receipt Date: 20160802
  Transmission Date: 20161109
  Serious: Yes (Other)
  Sender: FDA-Public Use
  Company Number: JP-009507513-1604JPN017341

PATIENT
  Age: 78 Year
  Sex: Female
  Weight: 40 kg

DRUGS (3)
  1. REBETOL [Suspect]
     Active Substance: RIBAVIRIN
     Indication: HEPATIC CIRRHOSIS
     Dosage: 2 CAPSULES DAILY (DIVIDED DOSE FREQUENCY UNKNOWN)
     Route: 048
     Dates: start: 20160305, end: 201603
  2. SOVALDI [Suspect]
     Active Substance: SOFOSBUVIR
     Indication: HEPATIC CIRRHOSIS
     Dosage: 400 MG DAILY (DIVIDED DOSE FREQUENCY UNKNOWN)
     Route: 048
     Dates: start: 20160305, end: 20160401
  3. REBETOL [Suspect]
     Active Substance: RIBAVIRIN
     Dosage: 1 CAPSULE DAILY (DIVIDED DOSE FREQUENCY UNKNOWN)
     Route: 048
     Dates: start: 201603, end: 20160318

REACTIONS (4)
  - Haemorrhage subcutaneous [Unknown]
  - Haemoglobin decreased [Recovered/Resolved]
  - Condition aggravated [Unknown]
  - Oedema peripheral [Recovering/Resolving]

NARRATIVE: CASE EVENT DATE: 2016
